FAERS Safety Report 9850478 (Version 1)
Quarter: 2013Q4

REPORT INFORMATION
  Report Type: Spontaneous
  Country: US (occurrence: None)
  Receive Date: 20131226
  Receipt Date: 20131226
  Transmission Date: 20140711
  Serious: Yes (Other)
  Sender: FDA-Public Use
  Company Number: PHEH2013US001076

PATIENT
  Age: 59 Year
  Sex: Female

DRUGS (15)
  1. DIOVAN (VALSARTAN) [Suspect]
  2. DIOVAN HCT (VALSARTAN, HYDROCHLOROTHIAZIDE) TABLET, 80/12.5MG [Suspect]
  3. ANASTROZOLE [Suspect]
  4. NAPROXEN [Suspect]
  5. LYRICA (PREGABALIN) [Suspect]
  6. LASIX (FUROSEMIDE) [Concomitant]
  7. COREG (CARVEDILOL) [Concomitant]
  8. EFFEXOR (VENLAFAXINE HYDROCHLORIDE) UNKNOWN [Concomitant]
  9. FLEXERIL (CYCLOBENZAPRINE HYDROCHLORIDE) [Concomitant]
  10. KLOR-CON (POTASSIUM CHLORIDE) [Concomitant]
  11. BUTRANS//BUPRENORPHINE (BUPRENORPHINE) PATCH [Concomitant]
  12. SYNTHROID (LEVOTHYROXINE SODIUM) [Concomitant]
  13. VALIUM (DIAZEPAM), 5 MG [Concomitant]
  14. ZONISAMIDE (ZONISAMIDE) UNKNOWN [Concomitant]
  15. ZYRTEC (CETIRIZINE HYDROCHLORIDE) [Concomitant]

REACTIONS (4)
  - Blood pressure increased [None]
  - Stress [None]
  - Alopecia [None]
  - Hot flush [None]
